FAERS Safety Report 25116681 (Version 3)
Quarter: 2025Q3

REPORT INFORMATION
  Report Type: Spontaneous
  Country: US (occurrence: US)
  Receive Date: 20250325
  Receipt Date: 20250723
  Transmission Date: 20251021
  Serious: No
  Sender: NOVARTIS
  Company Number: US-002147023-NVSC2025US045210

PATIENT
  Sex: Female

DRUGS (1)
  1. MEKINIST [Suspect]
     Active Substance: TRAMETINIB DIMETHYL SULFOXIDE
     Indication: Rheumatoid arthritis
     Dosage: 1.5 MG, QD
     Route: 048
     Dates: start: 202502

REACTIONS (11)
  - Acne [Unknown]
  - Vision blurred [Unknown]
  - Product use in unapproved indication [Unknown]
  - Epistaxis [Unknown]
  - Swelling face [Unknown]
  - Swelling of eyelid [Unknown]
  - Peripheral swelling [Unknown]
  - Arthralgia [Unknown]
  - Blister [Unknown]
  - Ageusia [Unknown]
  - Dry skin [Unknown]
